FAERS Safety Report 18032438 (Version 1)
Quarter: 2020Q3

REPORT INFORMATION
  Report Type: Spontaneous
  Country: RU (occurrence: RU)
  Receive Date: 20200716
  Receipt Date: 20200716
  Transmission Date: 20201103
  Serious: Yes (Other)
  Sender: FDA-Public Use
  Company Number: RU-PFIZER INC-2020271121

PATIENT
  Age: 61 Year
  Sex: Male

DRUGS (3)
  1. BOSUTINIB [Suspect]
     Active Substance: BOSUTINIB
     Indication: CHRONIC MYELOID LEUKAEMIA
     Dosage: 500 MG
  2. BOSUTINIB [Suspect]
     Active Substance: BOSUTINIB
     Dosage: 600 MG
  3. BOSUTINIB [Suspect]
     Active Substance: BOSUTINIB
     Dosage: 300 MG

REACTIONS (2)
  - Hydrothorax [Unknown]
  - Pleurisy [Unknown]

NARRATIVE: CASE EVENT DATE: 201909
